FAERS Safety Report 9661018 (Version 1)
Quarter: 2013Q4

REPORT INFORMATION
  Report Type: Report from Study
  Country: AU (occurrence: AU)
  Receive Date: 20131031
  Receipt Date: 20131031
  Transmission Date: 20140711
  Serious: Yes (Other)
  Sender: FDA-Public Use
  Company Number: AU-GLAXOSMITHKLINE-A0978096C

PATIENT
  Age: 43 Year
  Sex: Male
  Weight: 107.7 kg

DRUGS (2)
  1. GSK2118436 [Suspect]
     Indication: MALIGNANT MELANOMA
     Dosage: 150MG TWICE PER DAY
     Route: 048
     Dates: start: 20120403
  2. GSK1120212 [Suspect]
     Indication: MALIGNANT MELANOMA
     Dosage: 2MG PER DAY
     Route: 048
     Dates: start: 20120403

REACTIONS (3)
  - Pyrexia [Recovered/Resolved]
  - Chills [Recovered/Resolved]
  - Night sweats [Recovered/Resolved]
